FAERS Safety Report 17316457 (Version 1)
Quarter: 2020Q1

REPORT INFORMATION
  Report Type: Spontaneous
  Country: FI (occurrence: FI)
  Receive Date: 20200124
  Receipt Date: 20200124
  Transmission Date: 20200409
  Serious: Yes (Hospitalization)
  Sender: FDA-Public Use
  Company Number: FI-009507513-2001FIN007243

PATIENT
  Age: 85 Year
  Sex: Male

DRUGS (1)
  1. INVANZ [Suspect]
     Active Substance: ERTAPENEM SODIUM
     Indication: ESCHERICHIA SEPSIS
     Dosage: 1 G,DAILY
     Route: 042
     Dates: start: 20191218, end: 20191220

REACTIONS (4)
  - Ultrasound liver abnormal [Unknown]
  - Aspartate aminotransferase increased [Unknown]
  - Amylase increased [Unknown]
  - Alanine aminotransferase increased [Unknown]

NARRATIVE: CASE EVENT DATE: 20191220
